FAERS Safety Report 8454377-0 (Version None)
Quarter: 2012Q2

REPORT INFORMATION
  Report Type: 
  Country: None (occurrence: None)
  Receive Date: 20120621
  Receipt Date: 20120615
  Transmission Date: 20120825
  Serious: No
  Sender: FDA-Public Use
  Company Number: US-B.I. PHARMACEUTICALS,INC./RIDGEFIELD-2012-BP-13819BP

PATIENT
  Sex: Male

DRUGS (10)
  1. SYNTHROID [Concomitant]
     Indication: HYPOTHYROIDISM
     Dates: start: 20050101
  2. SYMBICORT [Concomitant]
     Indication: CHRONIC OBSTRUCTIVE PULMONARY DISEASE
  3. SANDOSTATIN [Concomitant]
     Indication: HEPATIC NEOPLASM MALIGNANT
     Dates: start: 20020401
  4. PRADAXA [Suspect]
     Indication: ATRIAL FIBRILLATION
     Dosage: 300 MG
     Route: 048
     Dates: start: 20120112
  5. COREG [Concomitant]
     Indication: CARDIAC DISORDER
     Dates: start: 20010101
  6. DIGOXIN [Concomitant]
     Indication: CARDIAC DISORDER
     Dates: start: 20010101
  7. SPIRIVA [Concomitant]
     Indication: CHRONIC OBSTRUCTIVE PULMONARY DISEASE
     Route: 055
  8. SPIRONOLACTONE [Concomitant]
     Indication: CARDIAC DISORDER
     Dates: start: 20010101
  9. FUROSEMIDE [Concomitant]
     Indication: CARDIAC FAILURE CONGESTIVE
     Dates: start: 20111001
  10. OXYGEN [Concomitant]
     Indication: CHRONIC OBSTRUCTIVE PULMONARY DISEASE

REACTIONS (3)
  - ABDOMINAL DISCOMFORT [None]
  - WEIGHT DECREASED [None]
  - DYSPEPSIA [None]
